APPROVED DRUG PRODUCT: PRISTIQ
Active Ingredient: DESVENLAFAXINE SUCCINATE
Strength: EQ 100MG BASE
Dosage Form/Route: TABLET, EXTENDED RELEASE;ORAL
Application: N021992 | Product #002 | TE Code: AB
Applicant: PF PRISM CV
Approved: Feb 29, 2008 | RLD: Yes | RS: Yes | Type: RX

PATENTS:
Patent 8269040 | Expires: Jul 5, 2027